FAERS Safety Report 4388841-0 (Version None)
Quarter: 2004Q2

REPORT INFORMATION
  Report Type: 
  Country: None (occurrence: None)
  Receive Date: 20040624
  Receipt Date: 20040617
  Transmission Date: 20050107
  Serious: Yes (Hospitalization)
  Sender: FDA-Public Use
  Company Number: SYN_0019_2004

PATIENT
  Age: 12 Hour
  Sex: Female

DRUGS (1)
  1. PAROXETINE (SALT FORM NOT SPECIFIED) [Suspect]
     Dosage: PAROXETINE-DURING PREGNANCY

REACTIONS (7)
  - BRADYCARDIA NEONATAL [None]
  - CONVULSION NEONATAL [None]
  - DRUG EXPOSURE DURING PREGNANCY [None]
  - ELECTROENCEPHALOGRAM ABNORMAL [None]
  - HYPOPNOEA [None]
  - HYPOTONIA NEONATAL [None]
  - NEONATAL DISORDER [None]
